FAERS Safety Report 14996668 (Version 1)
Quarter: 2018Q2

REPORT INFORMATION
  Report Type: Spontaneous
  Country: US (occurrence: US)
  Receive Date: 20180518
  Receipt Date: 20180518
  Transmission Date: 20180711
  Serious: Yes (Other)
  Sender: FDA-Public Use
  Company Number: None

PATIENT
  Age: 72 Year
  Sex: Female

DRUGS (1)
  1. GLEEVEC [Suspect]
     Active Substance: IMATINIB MESYLATE
     Indication: CHRONIC MYELOID LEUKAEMIA
     Dosage: 400MG  ONCE DAILY ORAL
     Route: 048
     Dates: start: 20170209, end: 201801

REACTIONS (3)
  - Blister [None]
  - Ill-defined disorder [None]
  - Vomiting [None]

NARRATIVE: CASE EVENT DATE: 201802
